FAERS Safety Report 10877677 (Version 1)
Quarter: 2015Q1

REPORT INFORMATION
  Report Type: Spontaneous
  Country: US (occurrence: None)
  Receive Date: 20150224
  Receipt Date: 20150224
  Transmission Date: 20150721
  Serious: Yes (Other)
  Sender: FDA-Public Use
  Company Number: 54973 AE # 1597

PATIENT
  Sex: Male

DRUGS (1)
  1. HYLAND^S BABY COUGH SYRUP LIQUID [Suspect]
     Active Substance: HOMEOPATHICS
     Indication: COUGH

REACTIONS (3)
  - Pneumonia [None]
  - Cough [None]
  - Vomiting [None]
